FAERS Safety Report 16887224 (Version 2)
Quarter: 2019Q4

REPORT INFORMATION
  Report Type: Spontaneous
  Country: ES (occurrence: ES)
  Receive Date: 20191004
  Receipt Date: 20191011
  Transmission Date: 20200122
  Serious: Yes (Other)
  Sender: FDA-Public Use
  Company Number: ES-JNJFOC-20190937027

PATIENT
  Sex: Female

DRUGS (3)
  1. IMBRUVICA [Suspect]
     Active Substance: IBRUTINIB
     Indication: CHRONIC LYMPHOCYTIC LEUKAEMIA
     Dosage: TREATED WITH IBRUTINIB FOR 2 YEARS AT FULL DOSES. AT THE MOMENT, PHYSICIAN WAS MAINTAINING THE DOSE.
     Route: 048
  2. IMBRUVICA [Suspect]
     Active Substance: IBRUTINIB
     Indication: LYMPHOCYTIC LEUKAEMIA
  3. IMBRUVICA [Suspect]
     Active Substance: IBRUTINIB
     Indication: IRON DEFICIENCY ANAEMIA

REACTIONS (3)
  - Polyp [Unknown]
  - Chronic lymphocytic leukaemia [Unknown]
  - Intestinal ulcer [Unknown]
